FAERS Safety Report 25457510 (Version 1)
Quarter: 2025Q2

REPORT INFORMATION
  Report Type: Spontaneous
  Country: CN (occurrence: CN)
  Receive Date: 20250619
  Receipt Date: 20250619
  Transmission Date: 20250717
  Serious: Yes (Other)
  Sender: PURDUE
  Company Number: CN-NAPPMUNDI-GBR-2025-0126405

PATIENT
  Age: 82 Year
  Sex: Female

DRUGS (5)
  1. OXYCODONE HYDROCHLORIDE [Suspect]
     Active Substance: OXYCODONE HYDROCHLORIDE
     Indication: Cancer pain
     Dosage: 20 MILLIGRAM, BID
     Route: 048
     Dates: start: 20250515, end: 202505
  2. OXYCODONE HYDROCHLORIDE [Suspect]
     Active Substance: OXYCODONE HYDROCHLORIDE
     Route: 048
     Dates: start: 202505, end: 202505
  3. OXYCODONE HYDROCHLORIDE [Suspect]
     Active Substance: OXYCODONE HYDROCHLORIDE
     Dosage: 20 MILLIGRAM, Q12H
     Route: 048
     Dates: start: 20250522, end: 20250522
  4. PREGABALIN [Suspect]
     Active Substance: PREGABALIN
     Indication: Oesophageal carcinoma
     Dosage: 75 MILLIGRAM, DAILY ONCE
     Route: 048
     Dates: start: 20250521, end: 20250522
  5. FENTANYL [Suspect]
     Active Substance: FENTANYL
     Indication: Oesophageal carcinoma
     Dosage: 4.2 MILLIGRAM, DAILY
     Route: 061
     Dates: start: 20250507, end: 20250522

REACTIONS (3)
  - Hypoxia [Recovering/Resolving]
  - Inappropriate schedule of product administration [Unknown]
  - Labelled drug-drug interaction issue [Unknown]

NARRATIVE: CASE EVENT DATE: 20250501
